FAERS Safety Report 20652142 (Version 1)
Quarter: 2022Q1

REPORT INFORMATION
  Report Type: Spontaneous
  Country: CA (occurrence: None)
  Receive Date: 20220330
  Receipt Date: 20220330
  Transmission Date: 20220423
  Serious: Yes (Disabling)
  Sender: FDA-Public Use
  Company Number: CA-ROCHE-3053960

PATIENT
  Age: 43 Year
  Sex: Male

DRUGS (11)
  1. ACTEMRA [Suspect]
     Active Substance: TOCILIZUMAB
     Indication: COVID-19
     Dosage: ACTEMRA 4 SINGLE USE VIALS. PRESERVATIVE FREE
     Route: 042
  2. ATROVENT [Concomitant]
     Active Substance: IPRATROPIUM BROMIDE
     Route: 065
  3. AZITHROMYCIN [Concomitant]
     Active Substance: AZITHROMYCIN
  4. DEXAMETHASONE [Concomitant]
     Active Substance: DEXAMETHASONE
     Route: 065
  5. FENTANYL [Concomitant]
     Active Substance: FENTANYL
  6. PANTOPRAZOLE [Concomitant]
     Active Substance: PANTOPRAZOLE
  7. PROPOFOL [Concomitant]
     Active Substance: PROPOFOL
     Route: 065
  8. ALBUTEROL [Concomitant]
     Active Substance: ALBUTEROL
  9. TINZAPARIN [Concomitant]
     Active Substance: TINZAPARIN
  10. ZINC [Concomitant]
     Active Substance: ZINC
  11. CEFTRIAXONE SODIUM [Concomitant]
     Active Substance: CEFTRIAXONE SODIUM

REACTIONS (3)
  - Ammonia increased [Unknown]
  - Hepatic enzyme increased [Unknown]
  - Sepsis [Unknown]
